FAERS Safety Report 6053251-7 (Version None)
Quarter: 2009Q1

REPORT INFORMATION
  Report Type: 
  Country: None (occurrence: None)
  Receive Date: 20090122
  Receipt Date: 20090107
  Transmission Date: 20090719
  Serious: Yes (Death, Life-Threatening, Hospitalization, Other)
  Sender: FDA-Public Use
  Company Number: 2009000081

PATIENT
  Age: 62 Year
  Sex: Female

DRUGS (12)
  1. ERLOTINIB (ERLOTINIB) (TABLET) (ERLOTINIB) [Suspect]
     Indication: PANCREATIC CARCINOMA
     Dosage: ORAL
     Route: 048
     Dates: start: 20080317, end: 20080317
  2. GEMCITABINE [Suspect]
     Dosage: INTRAVENOUS
     Route: 042
     Dates: start: 20080317, end: 20080317
  3. IMOVANE (ZOPICLONE) [Concomitant]
  4. PROPRANOLOL [Concomitant]
  5. DURAGESIC-100 [Concomitant]
  6. ACTISKENAN [Concomitant]
  7. PRIMPERAN TAB [Concomitant]
  8. ZOFRAN [Concomitant]
  9. FORTIMEL [Concomitant]
  10. FORLAX (MACROGOL) [Concomitant]
  11. FRAXIPARINE (HEPARIN-FRACTION, CALCIUM SALT) [Concomitant]
  12. PREDNISOLONE [Concomitant]

REACTIONS (9)
  - ABDOMINAL PAIN [None]
  - ANOREXIA [None]
  - DYSPHONIA [None]
  - ESCHERICHIA SEPSIS [None]
  - GENERAL PHYSICAL HEALTH DETERIORATION [None]
  - MALIGNANT NEOPLASM PROGRESSION [None]
  - NAUSEA [None]
  - VOCAL CORD PARALYSIS [None]
  - VOMITING [None]
